FAERS Safety Report 15816687 (Version 1)
Quarter: 2019Q1

REPORT INFORMATION
  Report Type: Spontaneous
  Country: US (occurrence: US)
  Receive Date: 20190113
  Receipt Date: 20190113
  Transmission Date: 20190417
  Serious: No
  Sender: FDA-Public Use
  Company Number: US-009507513-1901USA000540

PATIENT
  Sex: Female

DRUGS (1)
  1. PROVENTIL [Suspect]
     Active Substance: ALBUTEROL
     Route: 055

REACTIONS (4)
  - Heart rate increased [Recovered/Resolved]
  - Fear [Recovered/Resolved]
  - Product quality issue [Unknown]
  - Feeling jittery [Recovered/Resolved]
